FAERS Safety Report 6330302-3 (Version None)
Quarter: 2009Q3

REPORT INFORMATION
  Report Type: 
  Country: None (occurrence: None)
  Receive Date: 20090827
  Receipt Date: 20090720
  Transmission Date: 20100115
  Serious: No
  Sender: FDA-Public Use
  Company Number: US-KINGPHARMUSA00001-K200900857

PATIENT
  Sex: Female

DRUGS (2)
  1. FLECTOR [Suspect]
     Indication: BACK PAIN
     Dosage: 1 PATCH, Q12 HOURS
     Route: 061
  2. LIDODERM [Concomitant]
     Indication: BACK PAIN
     Dosage: 1 PATCH, 12 HOURS QD
     Route: 061

REACTIONS (1)
  - UNEVALUABLE EVENT [None]
